FAERS Safety Report 6372320-5 (Version None)
Quarter: 2009Q3

REPORT INFORMATION
  Report Type: 
  Country: None (occurrence: None)
  Receive Date: 20090924
  Receipt Date: 20081114
  Transmission Date: 20100115
  Serious: Yes (Hospitalization)
  Sender: FDA-Public Use
  Company Number: US-ASTRAZENECA-2008UW22612

PATIENT
  Age: 25 Year
  Sex: Male
  Weight: 78 kg

DRUGS (4)
  1. SEROQUEL [Suspect]
     Route: 048
     Dates: start: 20071211
  2. SEROQUEL [Suspect]
     Route: 048
     Dates: start: 20071211
  3. SEROQUEL [Suspect]
     Dosage: OVERDOSED ON 60 DAY SUPPLY OF SEROQUEL XR 300 MG
     Route: 048
     Dates: start: 20080926, end: 20080926
  4. SEROQUEL [Suspect]
     Dosage: OVERDOSED ON 60 DAY SUPPLY OF SEROQUEL IR 100 MG
     Route: 048
     Dates: start: 20080926, end: 20080926

REACTIONS (2)
  - CONVULSION [None]
  - INTENTIONAL OVERDOSE [None]
